FAERS Safety Report 9974553 (Version 1)
Quarter: 2014Q1

REPORT INFORMATION
  Report Type: Spontaneous
  Country: US (occurrence: US)
  Receive Date: 20140306
  Receipt Date: 20140306
  Transmission Date: 20141002
  Serious: No
  Sender: FDA-Public Use
  Company Number: US-ABBVIE-13P-163-1159230-00

PATIENT
  Age: 47 Year
  Sex: Female
  Weight: 100.33 kg

DRUGS (10)
  1. HUMIRA [Suspect]
     Indication: CROHN^S DISEASE
     Dates: start: 201212
  2. EFFEXOR [Concomitant]
     Indication: DEPRESSION
  3. GEMFIBROZIL [Concomitant]
     Indication: BLOOD TRIGLYCERIDES INCREASED
  4. BUPROPION [Concomitant]
     Indication: DEPRESSION
  5. HYDROCHLOROTHIAZIDE [Concomitant]
     Indication: HYPERTENSION
  6. DICYCLOMINE [Concomitant]
     Indication: ABDOMINAL PAIN UPPER
  7. OMEPRAZOLE [Concomitant]
     Indication: GASTRIC PH DECREASED
  8. LISINOPRIL [Concomitant]
     Indication: HYPERTENSION
  9. CALCIUM + VITAMIN D [Concomitant]
     Indication: BONE DISORDER
  10. IMURAN [Concomitant]
     Indication: INFLAMMATION

REACTIONS (2)
  - Amnesia [Not Recovered/Not Resolved]
  - Aphasia [Not Recovered/Not Resolved]
